FAERS Safety Report 4665796-2 (Version None)
Quarter: 2005Q2

REPORT INFORMATION
  Report Type: 
  Country: None (occurrence: None)
  Receive Date: 20050519
  Receipt Date: 20050127
  Transmission Date: 20051028
  Serious: No
  Sender: FDA-Public Use
  Company Number: US-GLAXOSMITHKLINE-A0542893A

PATIENT
  Age: 29 Year
  Sex: Female
  Weight: 62.3 kg

DRUGS (1)
  1. LOTRONEX [Suspect]
     Indication: IRRITABLE BOWEL SYNDROME
     Dosage: 1MG PER DAY
     Route: 048
     Dates: start: 20041027

REACTIONS (2)
  - MENSTRUAL DISORDER [None]
  - WEIGHT INCREASED [None]
